FAERS Safety Report 8385376 (Version 4)
Quarter: 2013Q1

REPORT INFORMATION
  Report Type: Spontaneous
  Country: US (occurrence: US)
  Receive Date: 20120202
  Receipt Date: 20130328
  Transmission Date: 20140127
  Serious: Yes (Other)
  Sender: FDA-Public Use
  Company Number: US-JNJFOC-20120113033

PATIENT
  Sex: Female
  Weight: 95.26 kg

DRUGS (15)
  1. TOPAMAX [Suspect]
     Indication: EPILEPSY
     Route: 048
  2. PHENOBARBITAL [Suspect]
     Indication: CONVULSION
     Route: 048
  3. LAMICTAL [Suspect]
     Indication: CONVULSION
     Route: 048
  4. ACETAMINOPHEN [Suspect]
     Route: 048
  5. ACETAMINOPHEN [Suspect]
     Indication: PAIN
     Route: 048
  6. PREVACID [Suspect]
     Indication: DYSPEPSIA
     Route: 048
  7. NASONEX [Suspect]
     Indication: HYPERSENSITIVITY
     Route: 045
  8. PROMETHAZINE HCL [Suspect]
     Indication: PRODUCT USED FOR UNKNOWN INDICATION
     Route: 065
  9. MISOPROSTOL [Suspect]
     Indication: PRODUCT USED FOR UNKNOWN INDICATION
     Route: 065
  10. BUTORPHANOL TARTRATE [Suspect]
     Indication: PRODUCT USED FOR UNKNOWN INDICATION
     Route: 065
  11. LORATADINE [Suspect]
     Indication: MULTIPLE ALLERGIES
     Route: 048
  12. GYNAZOLE 1 [Suspect]
     Indication: FUNGAL INFECTION
     Route: 067
  13. HYDROCORTISONE [Suspect]
     Indication: RASH
     Route: 061
  14. VITAMIN (PRENATAL) [Concomitant]
  15. FERROUS GLUCONATE [Concomitant]
     Indication: ANAEMIA

REACTIONS (7)
  - Depression [Unknown]
  - Exposure during pregnancy [Recovered/Resolved]
  - Anxiety [Unknown]
  - Pregnancy [None]
  - Fungal infection [None]
  - Rash [None]
  - Convulsion [None]
